FAERS Safety Report 6436695-0 (Version None)
Quarter: 2009Q4

REPORT INFORMATION
  Report Type: 
  Country: None (occurrence: None)
  Receive Date: 20091110
  Receipt Date: 20091110
  Transmission Date: 20100525
  Serious: Yes (Other)
  Sender: FDA-Public Use
  Company Number: None

PATIENT
  Age: 28 Year
  Sex: Female
  Weight: 87.9978 kg

DRUGS (1)
  1. YAZ [Suspect]
     Indication: MUSCLE SPASMS
     Dosage: NORMAL DOSE DAILY PO
     Route: 048
     Dates: start: 20090705, end: 20091103

REACTIONS (4)
  - ANXIETY [None]
  - CRYING [None]
  - HEADACHE [None]
  - PANIC ATTACK [None]
